FAERS Safety Report 18918533 (Version 1)
Quarter: 2021Q1

REPORT INFORMATION
  Report Type: Spontaneous
  Country: CN (occurrence: CN)
  Receive Date: 20210220
  Receipt Date: 20210220
  Transmission Date: 20210420
  Serious: Yes (Hospitalization)
  Sender: FDA-Public Use
  Company Number: CN-DRREDDYS-GPV/CHN/21/0131848

PATIENT
  Age: 61 Year
  Sex: Male
  Weight: 52 kg

DRUGS (2)
  1. OLANZAPINE. [Suspect]
     Active Substance: OLANZAPINE
     Indication: PSYCHOTIC SYMPTOM
     Dosage: 5MG,QD
     Route: 048
     Dates: start: 20201210, end: 20210120
  2. MAGNESIUM VALPROATE SUSTAINED RELEASE TABLETS [Suspect]
     Active Substance: VALPROATE MAGNESIUM
     Indication: AFFECT LABILITY
     Dosage: 0.25 G ONCE DAILY
     Route: 048
     Dates: start: 20210110, end: 20210120

REACTIONS (1)
  - Granulocytopenia [Recovering/Resolving]

NARRATIVE: CASE EVENT DATE: 20210120
